FAERS Safety Report 9546600 (Version 2)
Quarter: 2013Q4

REPORT INFORMATION
  Report Type: Spontaneous
  Country: CH (occurrence: CH)
  Receive Date: 20130924
  Receipt Date: 20131016
  Transmission Date: 20140711
  Serious: Yes (Other)
  Sender: FDA-Public Use
  Company Number: CH-ROCHE-1279695

PATIENT
  Sex: Male

DRUGS (8)
  1. LUCENTIS [Suspect]
     Indication: AGE-RELATED MACULAR DEGENERATION
     Dosage: IN BOTH EYES.?1 AMPOULE EVERY 1 TO 3 MONTHS
     Route: 050
     Dates: start: 200801
  2. NEBIVOLOL [Concomitant]
     Route: 065
  3. AMIODARONE [Concomitant]
     Route: 065
  4. SERETIDE [Concomitant]
     Route: 065
  5. ALDACTONE (UNITED STATES) [Concomitant]
     Route: 065
  6. ESOMEPRAZOLE [Concomitant]
     Route: 065
  7. AVODART [Concomitant]
     Route: 065
  8. VITAMIN B6 [Concomitant]

REACTIONS (1)
  - Epilepsy [Recovered/Resolved]
